FAERS Safety Report 13616388 (Version 1)
Quarter: 2017Q2

REPORT INFORMATION
  Report Type: Spontaneous
  Country: US (occurrence: US)
  Receive Date: 20170606
  Receipt Date: 20170606
  Transmission Date: 20170830
  Serious: Yes (Other)
  Sender: FDA-Public Use
  Company Number: None

PATIENT
  Age: 66 Year
  Sex: Female
  Weight: 56.25 kg

DRUGS (7)
  1. IOPAMIDOL [Suspect]
     Active Substance: IOPAMIDOL
     Indication: COMPUTERISED TOMOGRAM
     Dosage: ?          QUANTITY:1 INJECTION(S);OTHER FREQUENCY:ONCE FOR CT SCAN;?INTRAVENOUS (NOT OTHERWISE SPECIFIED) ?
     Route: 042
     Dates: start: 20170602, end: 20170602
  2. TRAZODONE [Concomitant]
     Active Substance: TRAZODONE HYDROCHLORIDE
  3. GLUCOSAMINE-CHONDROITIN [Concomitant]
     Active Substance: CHONDROITIN SULFATE (BOVINE)\GLUCOSAMINE SULFATE
  4. L-THYROXINE [Concomitant]
     Active Substance: LEVOTHYROXINE
  5. MELATONIN [Concomitant]
     Active Substance: MELATONIN
  6. VITAMINS [Concomitant]
     Active Substance: VITAMINS
  7. IOPAMIDOL [Suspect]
     Active Substance: IOPAMIDOL
     Indication: UROGRAM
     Dosage: ?          QUANTITY:1 INJECTION(S);OTHER FREQUENCY:ONCE FOR CT SCAN;?INTRAVENOUS (NOT OTHERWISE SPECIFIED) ?
     Route: 042
     Dates: start: 20170602, end: 20170602

REACTIONS (7)
  - Feeling hot [None]
  - Contraindicated product administered [None]
  - Rash macular [None]
  - Pruritus [None]
  - Headache [None]
  - Contrast media reaction [None]
  - Rash generalised [None]

NARRATIVE: CASE EVENT DATE: 20170602
